FAERS Safety Report 4436726-3 (Version None)
Quarter: 2004Q3

REPORT INFORMATION
  Report Type: 
  Country: None (occurrence: None)
  Receive Date: 20040728
  Receipt Date: 20031105
  Transmission Date: 20050211
  Serious: Yes (Life-Threatening)
  Sender: FDA-Public Use
  Company Number: 202837

PATIENT
  Age: 66 Year
  Sex: Male
  Weight: 80.3 kg

DRUGS (5)
  1. RITUXAN [Suspect]
     Indication: MANTLE CELL LYMPHOMA
     Dosage: 740 MG, INTRAVENOUS
     Route: 042
     Dates: start: 20030116, end: 20030926
  2. TYLNEOL (ACETAMINOPHEN) [Concomitant]
  3. BENADRYL [Concomitant]
  4. DECADRON [Concomitant]
  5. ZOFRAN [Concomitant]

REACTIONS (5)
  - BACK PAIN [None]
  - CHILLS [None]
  - HYPOTENSION [None]
  - NAUSEA [None]
  - RASH [None]
